FAERS Safety Report 9940507 (Version 1)
Quarter: 2014Q1

REPORT INFORMATION
  Report Type: Spontaneous
  Country: FI (occurrence: FI)
  Receive Date: 20140303
  Receipt Date: 20140303
  Transmission Date: 20141002
  Serious: Yes (Death, Hospitalization)
  Sender: FDA-Public Use
  Company Number: FI-MYLANLABS-2014S1003875

PATIENT
  Age: 85 Year
  Sex: Female

DRUGS (7)
  1. VENLAFAXINE [Suspect]
     Indication: POISONING DELIBERATE
     Route: 065
  2. VENLAFAXINE [Suspect]
     Indication: OFF LABEL USE
     Route: 065
  3. CITALOPRAM [Suspect]
     Indication: POISONING DELIBERATE
     Route: 065
  4. CITALOPRAM [Suspect]
     Indication: OFF LABEL USE
     Route: 065
  5. OXAZEPAM [Suspect]
     Indication: POISONING DELIBERATE
     Route: 065
  6. TEMAZEPAM [Suspect]
     Indication: POISONING DELIBERATE
     Route: 065
  7. TEMAZEPAM [Suspect]
     Indication: OFF LABEL USE
     Route: 065

REACTIONS (4)
  - Poisoning deliberate [Fatal]
  - Arteriosclerosis [Fatal]
  - Cerebral ischaemia [Fatal]
  - Loss of consciousness [Not Recovered/Not Resolved]
